FAERS Safety Report 23069059 (Version 1)
Quarter: 2023Q4

REPORT INFORMATION
  Report Type: Spontaneous
  Country: US (occurrence: US)
  Receive Date: 20231016
  Receipt Date: 20231016
  Transmission Date: 20240110
  Serious: No
  Sender: FDA-Public Use
  Company Number: US-INCYTE CORPORATION-2023IN010426

PATIENT

DRUGS (1)
  1. JAKAFI [Suspect]
     Active Substance: RUXOLITINIB
     Dosage: 15 MILLIGRAM, BID
     Route: 048

REACTIONS (7)
  - Asthenia [Unknown]
  - Pain [Unknown]
  - Back pain [Unknown]
  - Swelling [Unknown]
  - White blood cell count increased [Unknown]
  - Platelet count increased [Unknown]
  - Nausea [Unknown]
